FAERS Safety Report 8793494 (Version 1)
Quarter: 2012Q4

REPORT INFORMATION
  Report Type: 
  Country: PL (occurrence: PL)
  Receive Date: 20120918
  Receipt Date: 20120918
  Transmission Date: 20130627
  Serious: Yes (Death, Other)
  Sender: FDA-Public Use
  Company Number: PHHY2012PL080872

PATIENT
  Age: 57 Year
  Sex: Male
  Weight: 75 kg

DRUGS (5)
  1. KETONAL [Suspect]
     Indication: COLON CANCER
     Dosage: 200 mg, UNK
     Route: 042
     Dates: start: 20120627, end: 20120628
  2. MORPHINE [Concomitant]
  3. DEXAVEN [Concomitant]
  4. DEPAKINE [Concomitant]
  5. BUSCOLYSIN [Concomitant]

REACTIONS (2)
  - Death [Fatal]
  - Upper gastrointestinal haemorrhage [Unknown]
